FAERS Safety Report 24158085 (Version 2)
Quarter: 2024Q3

REPORT INFORMATION
  Report Type: Spontaneous
  Country: US (occurrence: US)
  Receive Date: 20240731
  Receipt Date: 20240812
  Transmission Date: 20241017
  Serious: Yes (Hospitalization)
  Sender: TEVA
  Company Number: US-TEVA-VS-3225918

PATIENT
  Age: 49 Year
  Sex: Male

DRUGS (2)
  1. PROPOFOL [Suspect]
     Active Substance: PROPOFOL
     Indication: Product used for unknown indication
     Route: 065
  2. BIVALIRUDIN [Concomitant]
     Active Substance: BIVALIRUDIN
     Indication: Anticoagulant therapy
     Route: 065

REACTIONS (1)
  - Hypertriglyceridaemia [Recovering/Resolving]
